FAERS Safety Report 9380276 (Version 1)
Quarter: 2013Q2

REPORT INFORMATION
  Report Type: Spontaneous
  Country: IT (occurrence: None)
  Receive Date: 20130628
  Receipt Date: 20130628
  Transmission Date: 20140414
  Serious: Yes (Life-Threatening, Other)
  Sender: FDA-Public Use
  Company Number: GER/ITL/13/0030168

PATIENT
  Age: 72 Year
  Sex: Male

DRUGS (4)
  1. QUETIAPINE (QUETIAPINE) (QUETIAPINE) [Suspect]
     Indication: PRODUCT USED FOR UNKNOWN INDICATION
     Dates: start: 20130409, end: 20130409
  2. TRAVOR (LORAZEPAM) [Concomitant]
  3. LACIREX (LACIDIPINE) [Concomitant]
  4. RATACAND (CANDESARTAN CILEXETIL) [Concomitant]

REACTIONS (3)
  - Coma [None]
  - Drug abuse [None]
  - Intentional self-injury [None]
